FAERS Safety Report 5195365-X (Version None)
Quarter: 2006Q4

REPORT INFORMATION
  Report Type: 
  Country: None (occurrence: None)
  Receive Date: 20061229
  Receipt Date: 20061219
  Transmission Date: 20070319
  Serious: Yes (Other)
  Sender: FDA-Public Use
  Company Number: FR-PFIZER INC-2006155272

PATIENT

DRUGS (1)
  1. SUTENT [Suspect]

REACTIONS (3)
  - ADRENAL INSUFFICIENCY [None]
  - HYPOTHYROIDISM [None]
  - METASTASIS [None]
